FAERS Safety Report 4736345-5 (Version None)
Quarter: 2005Q3

REPORT INFORMATION
  Report Type: 
  Country: None (occurrence: None)
  Receive Date: 20050805
  Receipt Date: 20050805
  Transmission Date: 20060218
  Serious: Yes (Other)
  Sender: FDA-Public Use
  Company Number: None

PATIENT
  Sex: Female
  Weight: 70.5 kg

DRUGS (5)
  1. VESANOID [Suspect]
     Indication: PROLYMPHOCYTIC LEUKAEMIA
     Dosage: SEE IMAGE
     Dates: start: 20050613
  2. DAUNORUBICIN [Suspect]
     Dosage: SEE IMAGE
     Route: 042
     Dates: start: 20050613, end: 20050615
  3. CYTARABINE [Suspect]
     Dosage: SEE IMAGE
     Route: 042
     Dates: start: 20050613
  4. VESANOID [Suspect]
     Dosage: SEE IMAGE
     Dates: start: 20050613
  5. DAUNORUBICIN [Suspect]
     Dosage: SEE IMAGE
     Route: 042
     Dates: start: 20050613

REACTIONS (9)
  - ANAEMIA [None]
  - CHEST DISCOMFORT [None]
  - CHEST PAIN [None]
  - ELECTROCARDIOGRAM T WAVE AMPLITUDE DECREASED [None]
  - ELECTROCARDIOGRAM T WAVE INVERSION [None]
  - HYPERKALAEMIA [None]
  - HYPOVOLAEMIA [None]
  - PAIN [None]
  - TROPONIN INCREASED [None]
